FAERS Safety Report 5758044-3 (Version None)
Quarter: 2008Q2

REPORT INFORMATION
  Report Type: 
  Country: None (occurrence: None)
  Receive Date: 20080602
  Receipt Date: 20080602
  Transmission Date: 20081010
  Serious: Yes (Other)
  Sender: FDA-Public Use
  Company Number: None

PATIENT
  Age: 32 Year
  Sex: Female
  Weight: 52.1637 kg

DRUGS (1)
  1. CHANTIX [Suspect]
     Indication: SMOKING CESSATION THERAPY
     Dosage: 3 MONTHS
     Dates: start: 20080315, end: 20080515

REACTIONS (5)
  - ANXIETY [None]
  - CRYING [None]
  - FEELING ABNORMAL [None]
  - INSOMNIA [None]
  - MALAISE [None]
